FAERS Safety Report 24152117 (Version 4)
Quarter: 2025Q2

REPORT INFORMATION
  Report Type: Report from Study
  Country: US (occurrence: US)
  Receive Date: 20240730
  Receipt Date: 20250512
  Transmission Date: 20250717
  Serious: Yes (Death, Hospitalization)
  Sender: ROCHE
  Company Number: US-ROCHE-10000030047

PATIENT
  Age: 80 Year
  Sex: Female
  Weight: 50.34 kg

DRUGS (6)
  1. ESBRIET [Suspect]
     Active Substance: PIRFENIDONE
     Indication: Idiopathic pulmonary fibrosis
     Dosage: TAKE 1 TABLET BY MOUTH 3 TIMES A DAY AS DIRECTED
     Route: 048
     Dates: start: 201912
  2. ESBRIET [Suspect]
     Active Substance: PIRFENIDONE
     Indication: Pulmonary fibrosis
  3. PRAVASTATIN [Concomitant]
     Active Substance: PRAVASTATIN
  4. PREDNISONE [Concomitant]
     Active Substance: PREDNISONE
  5. ESTRADIOL [Concomitant]
     Active Substance: ESTRADIOL
  6. ALBUTEROL [Concomitant]
     Active Substance: ALBUTEROL

REACTIONS (7)
  - Idiopathic pneumonia syndrome [Fatal]
  - Hypoxia [Unknown]
  - Interstitial lung disease [Unknown]
  - Bronchiectasis [Unknown]
  - Constipation [Unknown]
  - Osteoarthritis [Unknown]
  - Pseudomonas test positive [Unknown]

NARRATIVE: CASE EVENT DATE: 20210916
